FAERS Safety Report 8467832-4 (Version None)
Quarter: 2012Q2

REPORT INFORMATION
  Report Type: 
  Country: None (occurrence: None)
  Receive Date: 20120626
  Receipt Date: 20120618
  Transmission Date: 20120825
  Serious: Yes (Other)
  Sender: FDA-Public Use
  Company Number: US-GLAXOSMITHKLINE-A0982209A

PATIENT
  Age: 62 Year
  Sex: Female
  Weight: 28.8 kg

DRUGS (2)
  1. GSK1120212 [Suspect]
     Indication: THYROID CANCER
     Dosage: 1MG PER DAY
     Route: 048
  2. PAZOPANIB [Suspect]
     Indication: THYROID CANCER
     Dosage: 600MG PER DAY
     Route: 048
     Dates: start: 20120411

REACTIONS (1)
  - RETINAL DETACHMENT [None]
